FAERS Safety Report 5895496-2 (Version None)
Quarter: 2008Q3

REPORT INFORMATION
  Report Type: 
  Country: None (occurrence: None)
  Receive Date: 20080923
  Receipt Date: 20080923
  Transmission Date: 20090109
  Serious: Yes (Other)
  Sender: FDA-Public Use
  Company Number: None

PATIENT
  Age: 65 Year
  Sex: Female
  Weight: 64.4108 kg

DRUGS (2)
  1. XALATAN [Suspect]
     Indication: GLAUCOMA
     Dosage: 1 DROP IN BOTH EYES AT BEDTIME EVERYNIGHT OPTHALMIC
     Route: 047
     Dates: start: 20070220, end: 20071213
  2. TIMOLOL .5% EYE DROPS APON [Suspect]
     Indication: GLAUCOMA
     Dosage: 1 DROP IN BOTH EYES 2X PER DAY OPHTHALMIC
     Route: 047
     Dates: start: 20071220, end: 20071229

REACTIONS (10)
  - ALOPECIA [None]
  - ARTHRALGIA [None]
  - ASTHENIA [None]
  - DIZZINESS [None]
  - INFLUENZA LIKE ILLNESS [None]
  - MALAISE [None]
  - METABOLIC DISORDER [None]
  - MYALGIA [None]
  - VISION BLURRED [None]
  - WEIGHT INCREASED [None]
